FAERS Safety Report 19959954 (Version 1)
Quarter: 2021Q4

REPORT INFORMATION
  Report Type: Spontaneous
  Country: US (occurrence: US)
  Receive Date: 20211015
  Receipt Date: 20211015
  Transmission Date: 20220303
  Serious: No
  Sender: FDA-Public Use
  Company Number: US-SA-2021SA337934

PATIENT
  Sex: Female

DRUGS (13)
  1. DUPIXENT [Suspect]
     Active Substance: DUPILUMAB
     Indication: Dermatitis atopic
     Dosage: 300 MG, QOW
     Route: 058
     Dates: start: 20210911
  2. BUSPIRONE [Concomitant]
     Active Substance: BUSPIRONE HYDROCHLORIDE
  3. CLONAZEPAM [Concomitant]
     Active Substance: CLONAZEPAM
  4. EFFEXOR [Concomitant]
     Active Substance: VENLAFAXINE HYDROCHLORIDE
  5. HYDROXYZINE HYDROCHLORIDE [Concomitant]
     Active Substance: HYDROXYZINE HYDROCHLORIDE
  6. LEVOTHYROXINE [Concomitant]
     Active Substance: LEVOTHYROXINE
  7. LIDOCAINE [Concomitant]
     Active Substance: LIDOCAINE
  8. ESZOPICLONE [Concomitant]
     Active Substance: ESZOPICLONE
  9. MELOXICAM [Concomitant]
     Active Substance: MELOXICAM
  10. MORPHINE SULFATE [Concomitant]
     Active Substance: MORPHINE SULFATE
  11. OXYCODONE [Concomitant]
     Active Substance: OXYCODONE
  12. RETIN-A [Concomitant]
     Active Substance: TRETINOIN
  13. TIZANIDINE [Concomitant]
     Active Substance: TIZANIDINE

REACTIONS (2)
  - Neurodermatitis [Unknown]
  - Therapeutic response shortened [Unknown]
